FAERS Safety Report 8571653-1 (Version None)
Quarter: 2012Q3

REPORT INFORMATION
  Report Type: 
  Country: None (occurrence: None)
  Receive Date: 20120806
  Receipt Date: 20120727
  Transmission Date: 20120928
  Serious: Yes (Other)
  Sender: FDA-Public Use
  Company Number: IT-JNJFOC-20120800076

PATIENT
  Sex: Female

DRUGS (12)
  1. LANTUS [Concomitant]
     Indication: TYPE 2 DIABETES MELLITUS
  2. GABAPENTIN [Concomitant]
     Indication: PRODUCT USED FOR UNKNOWN INDICATION
     Route: 048
  3. ACETAMINOPHEN [Concomitant]
     Indication: PRODUCT USED FOR UNKNOWN INDICATION
     Route: 048
  4. METFORMIN HYDROCHLORIDE [Concomitant]
     Indication: TYPE 2 DIABETES MELLITUS
     Route: 048
  5. KARVEA [Concomitant]
     Indication: HYPERTENSION
     Route: 048
  6. REPAGLINIDE [Concomitant]
     Indication: TYPE 2 DIABETES MELLITUS
     Route: 048
  7. ACETYLSALICYLIC ACID SRT [Concomitant]
     Indication: HYPERTENSION
     Route: 048
  8. HALOPERIDOL [Suspect]
     Indication: DEPRESSION
     Route: 048
     Dates: start: 20120703, end: 20120711
  9. TRAZODONE HCL [Suspect]
     Indication: DEPRESSION
     Route: 048
     Dates: start: 20120613, end: 20120701
  10. NORVASC [Concomitant]
     Indication: HYPERTENSION
     Route: 048
     Dates: start: 20120613, end: 20120701
  11. HALOPERIDOL [Suspect]
     Route: 048
     Dates: start: 20120613, end: 20120702
  12. CLONIDINE [Concomitant]
     Indication: HYPERTENSION
     Route: 062

REACTIONS (6)
  - DYSSTASIA [None]
  - DRY MOUTH [None]
  - EXTRAPYRAMIDAL DISORDER [None]
  - DYSARTHRIA [None]
  - ANTICHOLINERGIC SYNDROME [None]
  - DECREASED APPETITE [None]
